FAERS Safety Report 24107291 (Version 1)
Quarter: 2024Q3

REPORT INFORMATION
  Report Type: Report from Study
  Country: US (occurrence: None)
  Receive Date: 20240718
  Receipt Date: 20240718
  Transmission Date: 20241017
  Serious: Yes (Hospitalization)
  Sender: ASTRAZENECA
  Company Number: 2021A068305

PATIENT
  Sex: Female

DRUGS (4)
  1. TAGRISSO [Suspect]
     Active Substance: OSIMERTINIB
     Indication: Lung neoplasm malignant
     Route: 048
     Dates: start: 20200902
  2. COLCHICINE [Concomitant]
     Active Substance: COLCHICINE
  3. COLCHICINE [Concomitant]
     Active Substance: COLCHICINE
  4. INDOMETHACIN [Concomitant]
     Active Substance: INDOMETHACIN

REACTIONS (3)
  - Pericarditis [Unknown]
  - Blood urea increased [Unknown]
  - Liver function test increased [Unknown]
